FAERS Safety Report 13209314 (Version 2)
Quarter: 2017Q1

REPORT INFORMATION
  Report Type: Spontaneous
  Country: US (occurrence: US)
  Receive Date: 20170209
  Receipt Date: 20170329
  Transmission Date: 20170428
  Serious: No
  Sender: FDA-Public Use
  Company Number: US-009507513-1701USA006142

PATIENT
  Age: 26 Year
  Sex: Female
  Weight: 69.39 kg

DRUGS (1)
  1. NEXPLANON [Suspect]
     Active Substance: ETONOGESTREL
     Indication: CONTRACEPTION
     Dosage: 68 MG/1 ROD EVERY 3 YEARS
     Route: 059
     Dates: start: 20161222, end: 20170207

REACTIONS (6)
  - Product quality issue [Unknown]
  - Headache [Unknown]
  - Device difficult to use [Recovered/Resolved]
  - Dizziness [Unknown]
  - Vomiting [Unknown]
  - Implant site bruising [Recovered/Resolved]

NARRATIVE: CASE EVENT DATE: 20161222
